FAERS Safety Report 9767604 (Version 1)
Quarter: 2013Q4

REPORT INFORMATION
  Report Type: Spontaneous
  Country: US (occurrence: US)
  Receive Date: 20131217
  Receipt Date: 20131217
  Transmission Date: 20140711
  Serious: No
  Sender: FDA-Public Use
  Company Number: US-TEVA-449906USA

PATIENT
  Age: 81 Year
  Sex: Female
  Weight: 65.83 kg

DRUGS (2)
  1. PROAIR HFA [Suspect]
     Indication: DYSPNOEA
     Dates: start: 20131204, end: 20131205
  2. OFLOXACIN [Concomitant]
     Indication: CYSTITIS

REACTIONS (1)
  - Insomnia [Unknown]
